FAERS Safety Report 6177165-7 (Version None)
Quarter: 2009Q2

REPORT INFORMATION
  Report Type: 
  Country: None (occurrence: None)
  Receive Date: 20090504
  Receipt Date: 20090422
  Transmission Date: 20091009
  Serious: Yes (Hospitalization, Other)
  Sender: FDA-Public Use
  Company Number: GB-PFIZER INC-2009170809

PATIENT

DRUGS (15)
  1. *ERLOTINIB [Suspect]
     Indication: NON-SMALL CELL LUNG CANCER METASTATIC
     Dosage: 150 MG, 1X/DAY
     Route: 048
     Dates: start: 20090128, end: 20090212
  2. BLINDED *PLACEBO [Suspect]
     Indication: NON-SMALL CELL LUNG CANCER
     Dosage: 37.5 MG, 1X/DAY
     Route: 048
     Dates: start: 20090128, end: 20090212
  3. BLINDED SUNITINIB MALATE [Suspect]
     Indication: NON-SMALL CELL LUNG CANCER
     Dosage: 37.5 MG, 1X/DAY
     Route: 048
     Dates: start: 20090128, end: 20090212
  4. OXYNORM [Concomitant]
     Indication: CANCER PAIN
  5. PARACETAMOL [Concomitant]
     Indication: CANCER PAIN
  6. OMEPRAZOLE [Concomitant]
     Indication: PROPHYLAXIS
  7. OXYCONTIN [Concomitant]
     Indication: CANCER PAIN
  8. CITALOPRAM [Concomitant]
     Indication: DEPRESSION
  9. LEVOMEPROMAZINE [Concomitant]
     Indication: SEDATION
  10. SERETIDE [Concomitant]
     Indication: ASTHMA
     Route: 045
  11. XALATAN [Concomitant]
     Indication: OCULAR HYPERTENSION
     Route: 061
  12. DOXAZOSIN [Concomitant]
     Indication: HYPERTENSION
  13. FINASTERIDE [Concomitant]
     Indication: BENIGN PROSTATIC HYPERPLASIA
  14. SIMVASTATIN [Concomitant]
     Indication: HYPERCHOLESTEROLAEMIA
  15. LOPERAMIDE [Concomitant]
     Indication: DIARRHOEA

REACTIONS (2)
  - HYPOMAGNESAEMIA [None]
  - RENAL FAILURE ACUTE [None]
